FAERS Safety Report 24762733 (Version 1)
Quarter: 2024Q4

REPORT INFORMATION
  Report Type: Report from Study
  Country: GB (occurrence: GB)
  Receive Date: 20241222
  Receipt Date: 20241222
  Transmission Date: 20250115
  Serious: Yes (Other)
  Sender: ROCHE
  Company Number: GB-ROCHE-10000159333

PATIENT
  Sex: Male

DRUGS (1)
  1. OCREVUS [Suspect]
     Active Substance: OCRELIZUMAB
     Indication: Relapsing-remitting multiple sclerosis
     Route: 042

REACTIONS (1)
  - Pneumonia [Recovered/Resolved]
